FAERS Safety Report 19217584 (Version 1)
Quarter: 2021Q2

REPORT INFORMATION
  Report Type: Spontaneous
  Country: CH (occurrence: CH)
  Receive Date: 20210505
  Receipt Date: 20210505
  Transmission Date: 20210717
  Serious: Yes (Other)
  Sender: FDA-Public Use
  Company Number: CH-STRIDES ARCOLAB LIMITED-2021SP005066

PATIENT
  Age: 49 Year
  Sex: Female

DRUGS (8)
  1. TAMOXIFEN [Interacting]
     Active Substance: TAMOXIFEN
     Indication: BREAST CANCER RECURRENT
     Dosage: 20 MILLIGRAM
     Route: 065
  2. TAMOXIFEN [Interacting]
     Active Substance: TAMOXIFEN
     Dosage: 10 MILLIGRAM PER DAY
     Route: 065
  3. TAMOXIFEN [Interacting]
     Active Substance: TAMOXIFEN
     Dosage: UNK, DOSE WAS REDUCED
     Route: 065
  4. IBUPROFEN. [Suspect]
     Active Substance: IBUPROFEN
     Indication: PAIN
     Dosage: 600 MILLIGRAM, AS NEEDED (0.5?0.5?0.5)
     Route: 065
  5. PANTOPRAZOLE [Interacting]
     Active Substance: PANTOPRAZOLE
     Indication: PRODUCT USED FOR UNKNOWN INDICATION
     Dosage: 20 MILLIGRAM, QD
     Route: 065
  6. MISTLETOE [Concomitant]
     Active Substance: VISCUM ALBUM FRUITING TOP
     Indication: SUPPORTIVE CARE
     Dosage: UNK
     Route: 065
  7. DIPYRONE [Concomitant]
     Active Substance: DIPYRONE
     Indication: PAIN
     Dosage: UNK
     Route: 065
  8. LORAZEPAM. [Concomitant]
     Active Substance: LORAZEPAM
     Indication: INSOMNIA
     Dosage: UNK
     Route: 065

REACTIONS (5)
  - Hot flush [Unknown]
  - Impaired work ability [Unknown]
  - Hyperhidrosis [Unknown]
  - Emotional distress [Unknown]
  - Drug interaction [Unknown]
